FAERS Safety Report 8613494 (Version 3)
Quarter: 2012Q4

REPORT INFORMATION
  Report Type: Report from Study
  Country: DE (occurrence: IT)
  Receive Date: 20120614
  Receipt Date: 20121203
  Transmission Date: 20130627
  Serious: Yes (Other)
  Sender: FDA-Public Use
  Company Number: IT-BRISTOL-MYERS SQUIBB COMPANY-16673840

PATIENT
  Age: 73 Year
  Sex: Male

DRUGS (2)
  1. BELATACEPT [Suspect]
     Indication: RENAL TRANSPLANT
     Route: 042
     Dates: start: 20060328
  2. AZATHIOPRINE [Concomitant]
     Indication: RENAL TRANSPLANT
     Route: 048
     Dates: start: 20100216

REACTIONS (1)
  - Prostate cancer [Recovered/Resolved]
